FAERS Safety Report 6089061-4 (Version None)
Quarter: 2009Q1

REPORT INFORMATION
  Report Type: 
  Country: None (occurrence: None)
  Receive Date: 20090224
  Receipt Date: 20090217
  Transmission Date: 20090719
  Serious: Yes (Hospitalization)
  Sender: FDA-Public Use
  Company Number: B0559846A

PATIENT
  Sex: Male

DRUGS (2)
  1. BECOTIDE [Suspect]
     Indication: ASTHMA
     Dosage: 100MCG TWICE PER DAY
     Route: 055
     Dates: start: 20081201
  2. VENTOLIN [Suspect]
     Indication: ASTHMA
     Route: 055

REACTIONS (9)
  - ANAEMIA [None]
  - ASTHMA [None]
  - DRUG INEFFECTIVE [None]
  - HERPES VIRUS INFECTION [None]
  - LOWER LIMB FRACTURE [None]
  - LOWER RESPIRATORY TRACT INFECTION [None]
  - MUSCLE ATROPHY [None]
  - PRODUCT QUALITY ISSUE [None]
  - PROSTATE CANCER [None]
